FAERS Safety Report 8442656-2 (Version None)
Quarter: 2012Q2

REPORT INFORMATION
  Report Type: 
  Country: None (occurrence: None)
  Receive Date: 20120615
  Receipt Date: 20111130
  Transmission Date: 20120825
  Serious: No
  Sender: FDA-Public Use
  Company Number: US-NOVEN-11US003702

PATIENT
  Sex: Male

DRUGS (2)
  1. METHYLIN [Concomitant]
     Indication: ATTENTION DEFICIT/HYPERACTIVITY DISORDER
     Dosage: 5 MG, Q AM
     Route: 048
  2. DAYTRANA [Suspect]
     Indication: ATTENTION DEFICIT/HYPERACTIVITY DISORDER
     Dosage: 20 MG, QD FOR 9 HR
     Route: 062
     Dates: start: 20111001

REACTIONS (3)
  - DRUG EFFECT DELAYED [None]
  - PRODUCT QUALITY ISSUE [None]
  - APPLICATION SITE PAIN [None]
